FAERS Safety Report 14093350 (Version 1)
Quarter: 2017Q4

REPORT INFORMATION
  Report Type: Spontaneous
  Country: US (occurrence: US)
  Receive Date: 20171016
  Receipt Date: 20171016
  Transmission Date: 20180321
  Serious: Yes (Hospitalization, Disabling, Other)
  Sender: FDA-Public Use
  Company Number: None

PATIENT
  Age: 25 Year
  Sex: Female
  Weight: 50.4 kg

DRUGS (3)
  1. ESCITALOPRAM [Suspect]
     Active Substance: ESCITALOPRAM OXALATE
     Indication: GENERALISED ANXIETY DISORDER
     Dosage: ?          QUANTITY:1 TABLET(S);?
     Route: 048
     Dates: start: 20170314, end: 20170314
  2. KLONOPIN [Concomitant]
     Active Substance: CLONAZEPAM
  3. ABILIFY [Concomitant]
     Active Substance: ARIPIPRAZOLE

REACTIONS (23)
  - Syncope [None]
  - Physical disability [None]
  - Weight decreased [None]
  - Abdominal pain [None]
  - Emotional distress [None]
  - Pyrexia [None]
  - Diarrhoea [None]
  - Tinnitus [None]
  - Depersonalisation/derealisation disorder [None]
  - Feeling abnormal [None]
  - Panic attack [None]
  - Vomiting [None]
  - Nausea [None]
  - Eating disorder [None]
  - Vision blurred [None]
  - Suicidal ideation [None]
  - Chills [None]
  - Impaired work ability [None]
  - Depression [None]
  - Post-traumatic stress disorder [None]
  - Fear [None]
  - Hallucination, visual [None]
  - Mental impairment [None]

NARRATIVE: CASE EVENT DATE: 20170314
